FAERS Safety Report 10090180 (Version 2)
Quarter: 2014Q2

REPORT INFORMATION
  Report Type: Spontaneous
  Country: US (occurrence: US)
  Receive Date: 20140421
  Receipt Date: 20140513
  Transmission Date: 20141212
  Serious: No
  Sender: FDA-Public Use
  Company Number: US-009507513-1404USA007623

PATIENT
  Sex: Female

DRUGS (2)
  1. COPPERTONE ULTRAGUARD LOTION SPF 50 [Suspect]
     Indication: PRODUCT USED FOR UNKNOWN INDICATION
     Dosage: UNK, UNKNOWN
     Route: 061
  2. COPPERTONE ULTRAGUARD LOTION SPF 50 [Suspect]
     Dosage: UNK, UNKNOWN
     Route: 061

REACTIONS (3)
  - Pigmentation disorder [Unknown]
  - Expired product administered [Unknown]
  - Drug ineffective [Unknown]
